FAERS Safety Report 9216033 (Version 1)
Quarter: 2013Q2

REPORT INFORMATION
  Report Type: Spontaneous
  Country: AU (occurrence: None)
  Receive Date: 20130404
  Receipt Date: 20130404
  Transmission Date: 20140414
  Serious: Yes (Other)
  Sender: FDA-Public Use
  Company Number: NGX_01643_2013

PATIENT
  Age: 34 Year
  Sex: Female

DRUGS (4)
  1. QUTENZA [Suspect]
     Indication: NEURALGIA
  2. QUTENZA [Suspect]
     Indication: COMPLEX REGIONAL PAIN SYNDROME
  3. ROPIVACAINE [Concomitant]
  4. SUFENTANIL [Concomitant]

REACTIONS (7)
  - Complex regional pain syndrome [None]
  - Application site pain [None]
  - Abasia [None]
  - Condition aggravated [None]
  - Depression [None]
  - Therapeutic response decreased [None]
  - Incorrect drug administration duration [None]
